FAERS Safety Report 18957622 (Version 1)
Quarter: 2021Q1

REPORT INFORMATION
  Report Type: Report from Study
  Country: US (occurrence: US)
  Receive Date: 20210302
  Receipt Date: 20210302
  Transmission Date: 20210420
  Serious: Yes (Death, Other)
  Sender: FDA-Public Use
  Company Number: US-PFIZER INC-2021183856

PATIENT

DRUGS (2)
  1. MAGNESIUM SULFATE. [Suspect]
     Active Substance: MAGNESIUM SULFATE
     Indication: TOCOLYSIS
     Dosage: 4 G BOLUS
     Route: 064
  2. MAGNESIUM SULFATE. [Suspect]
     Active Substance: MAGNESIUM SULFATE
     Dosage: UNK (2?3 G/HOUR INFUSION)
     Route: 064

REACTIONS (5)
  - Pulmonary oedema [Fatal]
  - Exposure during pregnancy [Unknown]
  - Pericardial haemorrhage [Fatal]
  - Sudden infant death syndrome [Fatal]
  - Premature baby [Unknown]
